FAERS Safety Report 9606045 (Version 2)
Quarter: 2013Q4

REPORT INFORMATION
  Report Type: Spontaneous
  Country: US (occurrence: US)
  Receive Date: 20131008
  Receipt Date: 20131008
  Transmission Date: 20140711
  Serious: No
  Sender: FDA-Public Use
  Company Number: US-AMGEN-USASP2013038138

PATIENT
  Age: 66 Year
  Sex: Male

DRUGS (5)
  1. PROLIA [Suspect]
     Indication: OSTEOPOROSIS POSTMENOPAUSAL
     Dosage: 60 MG, UNK
     Dates: start: 20121206
  2. PROLIA [Suspect]
  3. MELOXICAM [Concomitant]
  4. PANTOPRAZOLE [Concomitant]
  5. ALPRAZOLAM [Concomitant]

REACTIONS (13)
  - Dyspnoea [Recovered/Resolved]
  - Rash erythematous [Recovered/Resolved]
  - Vision blurred [Not Recovered/Not Resolved]
  - Pain in jaw [Not Recovered/Not Resolved]
  - Ear pain [Recovered/Resolved]
  - Stomatitis [Not Recovered/Not Resolved]
  - Dry mouth [Not Recovered/Not Resolved]
  - Gingival blister [Unknown]
  - Tongue blistering [Unknown]
  - Abdominal pain lower [Unknown]
  - Muscle strain [Unknown]
  - Back pain [Unknown]
  - Urticaria [Recovered/Resolved]
